FAERS Safety Report 16443049 (Version 1)
Quarter: 2019Q2

REPORT INFORMATION
  Report Type: Spontaneous
  Country: PT (occurrence: PT)
  Receive Date: 20190617
  Receipt Date: 20190617
  Transmission Date: 20190711
  Serious: Yes (Other)
  Sender: FDA-Public Use
  Company Number: PT-UCBSA-2019024579

PATIENT
  Age: 25 Year
  Sex: Female

DRUGS (1)
  1. CIMZIA [Suspect]
     Active Substance: CERTOLIZUMAB PEGOL
     Indication: PSORIATIC ARTHROPATHY
     Dosage: 400MG NAS SEMANAS 0, 2 E 4. POSTERIORMENTE 200MG DE 2 EM 2 SEMANAS.
     Route: 058
     Dates: start: 20190117, end: 20190214

REACTIONS (2)
  - Pruritus generalised [Recovered/Resolved]
  - Rash papular [Recovered/Resolved]

NARRATIVE: CASE EVENT DATE: 20190117
